FAERS Safety Report 19788962 (Version 5)
Quarter: 2025Q1

REPORT INFORMATION
  Report Type: Spontaneous
  Country: DE (occurrence: DE)
  Receive Date: 20210904
  Receipt Date: 20250301
  Transmission Date: 20250409
  Serious: Yes (Hospitalization, Disabling, Other)
  Sender: AUROBINDO
  Company Number: DE-002147023-NVSC2020DE305024

PATIENT
  Age: 53 Year
  Sex: Male
  Weight: 97 kg

DRUGS (8)
  1. RISEDRONATE SODIUM [Suspect]
     Active Substance: RISEDRONATE SODIUM
     Indication: Malaise
     Route: 065
     Dates: start: 20201125, end: 20210510
  2. RISEDRONATE SODIUM [Suspect]
     Active Substance: RISEDRONATE SODIUM
     Indication: Bone marrow disorder
  3. RISEDRONATE SODIUM [Suspect]
     Active Substance: RISEDRONATE SODIUM
     Indication: Osteoarthritis
  4. TASIGNA [Suspect]
     Active Substance: NILOTINIB
     Indication: Chronic myeloid leukaemia
     Dosage: 600 MILLIGRAM, ONCE A DAY(300 MG, BID (300 MG / 2 DOSAGE FORMS)(4 X DAILY)
     Route: 048
     Dates: start: 20191204, end: 20201029
  5. TASIGNA [Suspect]
     Active Substance: NILOTINIB
     Dosage: 600 MILLIGRAM, ONCE A DAY(300 MG, BID (600 MG/ 2X300MG))
     Route: 048
     Dates: start: 20191205, end: 202010
  6. TASIGNA [Suspect]
     Active Substance: NILOTINIB
     Dosage: 600 MILLIGRAM, ONCE A DAY (600 MG, QD)
     Route: 048
     Dates: start: 202011, end: 20201217
  7. TASIGNA [Suspect]
     Active Substance: NILOTINIB
     Dosage: 1200 MILLIGRAM, ONCE A DAY(600 MG, BID)
     Route: 048
     Dates: start: 20201125, end: 20201217
  8. BOSULIF [Concomitant]
     Active Substance: BOSUTINIB MONOHYDRATE
     Indication: Product used for unknown indication
     Route: 065
     Dates: start: 20210607

REACTIONS (66)
  - Femur fracture [Recovered/Resolved with Sequelae]
  - Osteonecrosis [Recovered/Resolved with Sequelae]
  - Walking disability [Recovered/Resolved with Sequelae]
  - Pain in extremity [Recovered/Resolved with Sequelae]
  - Bone pain [Recovered/Resolved with Sequelae]
  - Gait disturbance [Recovered/Resolved with Sequelae]
  - Arthralgia [Recovered/Resolved with Sequelae]
  - Movement disorder [Recovered/Resolved with Sequelae]
  - Bone marrow oedema syndrome [Unknown]
  - Malaise [Not Recovered/Not Resolved]
  - Bone density decreased [Recovered/Resolved with Sequelae]
  - General physical health deterioration [Not Recovered/Not Resolved]
  - Mental disorder [Unknown]
  - Blindness [Unknown]
  - Chondropathy [Not Recovered/Not Resolved]
  - Meniscus injury [Recovered/Resolved with Sequelae]
  - Muscle tightness [Not Recovered/Not Resolved]
  - Thoracic outlet syndrome [Not Recovered/Not Resolved]
  - Myosclerosis [Not Recovered/Not Resolved]
  - Intervertebral disc degeneration [Not Recovered/Not Resolved]
  - Joint effusion [Recovering/Resolving]
  - Lymphocyte count decreased [Recovered/Resolved]
  - Back pain [Not Recovered/Not Resolved]
  - Aortic elongation [Unknown]
  - Balance disorder [Unknown]
  - Lymphocyte morphology abnormal [Unknown]
  - Dry skin [Unknown]
  - Hypoaesthesia [Not Recovered/Not Resolved]
  - Intervertebral disc protrusion [Unknown]
  - Blood disorder [Unknown]
  - Hyperacusis [Unknown]
  - Arthropathy [Not Recovered/Not Resolved]
  - Monocyte count decreased [Unknown]
  - Sleep disorder [Unknown]
  - Bronchitis chronic [Unknown]
  - Aortic arteriosclerosis [Unknown]
  - Asthenia [Unknown]
  - Autonomic nervous system imbalance [Unknown]
  - Obesity [Unknown]
  - Blood uric acid increased [Unknown]
  - Groin pain [Unknown]
  - Hyperkeratosis [Unknown]
  - Gamma-glutamyltransferase increased [Unknown]
  - Monocyte count increased [Recovered/Resolved]
  - Band neutrophil count decreased [Unknown]
  - Blood albumin increased [Unknown]
  - Low density lipoprotein increased [Unknown]
  - Headache [Unknown]
  - Blood pressure increased [Unknown]
  - Synovial cyst [Unknown]
  - Haemoglobin decreased [Unknown]
  - Sacroiliac joint dysfunction [Unknown]
  - Haematocrit decreased [Unknown]
  - Hypoaesthesia [Not Recovered/Not Resolved]
  - Eosinophil count increased [Unknown]
  - Nocturia [Unknown]
  - Lymphocyte count increased [Unknown]
  - Cytogenetic analysis abnormal [Recovered/Resolved]
  - Stress [Unknown]
  - Nutritional condition abnormal [Unknown]
  - Treatment failure [Unknown]
  - Pain [Unknown]
  - Inappropriate schedule of product administration [Unknown]
  - Incorrect product dosage form administered [Unknown]
  - Incorrect dose administered [Unknown]
  - Off label use [Unknown]

NARRATIVE: CASE EVENT DATE: 20190101
